FAERS Safety Report 9175298 (Version 2)
Quarter: 2013Q1

REPORT INFORMATION
  Report Type: Spontaneous
  Country: ZA (occurrence: ZA)
  Receive Date: 20130320
  Receipt Date: 20130326
  Transmission Date: 20140127
  Serious: Yes (Other)
  Sender: FDA-Public Use
  Company Number: ZA-PFIZER INC-2013090190

PATIENT
  Sex: Male

DRUGS (6)
  1. CHAMPIX [Suspect]
     Indication: SMOKING CESSATION THERAPY
     Route: 048
  2. SERDEP [Concomitant]
  3. WARFARIN [Concomitant]
  4. MICARDIS [Concomitant]
  5. CRESTOR [Concomitant]
  6. OMEZOLAN [Concomitant]

REACTIONS (5)
  - Personality change [Unknown]
  - Hallucination [Unknown]
  - Thinking abnormal [Unknown]
  - Aggression [Unknown]
  - Suspiciousness [Unknown]
